FAERS Safety Report 9994664 (Version 1)
Quarter: 2014Q1

REPORT INFORMATION
  Report Type: Spontaneous
  Country: US (occurrence: None)
  Receive Date: 20140306
  Receipt Date: 20140306
  Transmission Date: 20141002
  Serious: Yes (Life-Threatening, Other)
  Sender: FDA-Public Use
  Company Number: 001678622A

PATIENT
  Age: 52 Year
  Sex: Female

DRUGS (4)
  1. MEANINGFUL BEAUTY ANTIOXIDANT DAY CREME WITH SPF 20 [Suspect]
     Dosage: ONCE, DAILY DERMAL
     Dates: start: 20140111
  2. SKIN BRIGHTENING DECOLLETE AND NECK TREATMENT SPF 15 [Suspect]
     Dosage: ONCE, DAILY DERMAL
     Dates: start: 20140111
  3. SINGULAR [Concomitant]
  4. EPIPEN [Concomitant]

REACTIONS (3)
  - Erythema [None]
  - Blister [None]
  - Eye swelling [None]
